FAERS Safety Report 5080386-8 (Version None)
Quarter: 2006Q3

REPORT INFORMATION
  Report Type: 
  Country: None (occurrence: None)
  Receive Date: 20060814
  Receipt Date: 20060814
  Transmission Date: 20061208
  Serious: Yes (Death)
  Sender: FDA-Public Use
  Company Number: None

PATIENT
  Age: 69 Year
  Sex: Male

DRUGS (1)
  1. VANCOMYCIN [Suspect]
     Indication: PSEUDOMONAL BACTERAEMIA
     Dates: start: 20060120, end: 20060215

REACTIONS (3)
  - DRUG INEFFECTIVE [None]
  - ENTEROCOCCAL INFECTION [None]
  - MEDICATION ERROR [None]
